FAERS Safety Report 23302549 (Version 2)
Quarter: 2025Q3

REPORT INFORMATION
  Report Type: Report from Study
  Country: EU (occurrence: EU)
  Receive Date: 20231215
  Receipt Date: 20250820
  Transmission Date: 20251020
  Serious: Yes (Death, Other)
  Sender: TAKEDA
  Company Number: EU-JNJFOC-20231226971

PATIENT

DRUGS (8)
  1. BORTEZOMIB [Suspect]
     Active Substance: BORTEZOMIB
     Indication: Plasma cell myeloma
  2. DEXAMETHASONE [Suspect]
     Active Substance: DEXAMETHASONE
     Indication: Plasma cell myeloma
  3. PREDNISONE [Suspect]
     Active Substance: PREDNISONE
     Indication: Plasma cell myeloma
  4. TOLODODEKIN ALFA [Suspect]
     Active Substance: TOLODODEKIN ALFA
     Indication: Plasma cell myeloma
  5. CARFILZOMIB [Suspect]
     Active Substance: CARFILZOMIB
     Indication: Plasma cell myeloma
  6. CARFILZOMIB [Suspect]
     Active Substance: CARFILZOMIB
     Dosage: 56 MILLIGRAM/SQ. METER, 1/WEEK
  7. REVLIMID [Suspect]
     Active Substance: LENALIDOMIDE
     Indication: Plasma cell myeloma
  8. MELPHALAN [Suspect]
     Active Substance: MELPHALAN
     Indication: Plasma cell myeloma

REACTIONS (12)
  - COVID-19 [Fatal]
  - Infection [Fatal]
  - Toxicity to various agents [Unknown]
  - Cardiovascular disorder [Unknown]
  - Cardiac failure [Unknown]
  - Neutropenia [Unknown]
  - Thrombocytopenia [Unknown]
  - Hypertension [Unknown]
  - Neuropathy peripheral [Unknown]
  - Gastrointestinal disorder [Unknown]
  - Rash [Unknown]
  - Anaemia [Unknown]
